FAERS Safety Report 18393298 (Version 1)
Quarter: 2020Q4

REPORT INFORMATION
  Report Type: Spontaneous
  Country: US (occurrence: US)
  Receive Date: 20201016
  Receipt Date: 20201016
  Transmission Date: 20210114
  Serious: Yes (Life-Threatening)
  Sender: FDA-Public Use
  Company Number: US-SA-2020SA288067

PATIENT

DRUGS (1)
  1. UNISOM SLEEPTABS [Suspect]
     Active Substance: DOXYLAMINE SUCCINATE
     Indication: OVERDOSE
     Dosage: ONE TIME
     Dates: start: 2008, end: 2008

REACTIONS (3)
  - Drug ineffective [Unknown]
  - Insomnia [Unknown]
  - Intentional overdose [Unknown]

NARRATIVE: CASE EVENT DATE: 2008
